FAERS Safety Report 24781350 (Version 1)
Quarter: 2024Q4

REPORT INFORMATION
  Report Type: Spontaneous
  Country: CN (occurrence: CN)
  Receive Date: 20241227
  Receipt Date: 20241227
  Transmission Date: 20250115
  Serious: Yes (Other)
  Sender: PANACEA BIOTEC PHARMA LIMITED
  Company Number: CN-PBT-010016

PATIENT
  Age: 12 Year
  Sex: Male

DRUGS (10)
  1. TACROLIMUS [Suspect]
     Active Substance: TACROLIMUS
     Indication: Acute graft versus host disease
     Route: 065
     Dates: start: 201904
  2. MYCOPHENOLATE MOFETIL [Suspect]
     Active Substance: MYCOPHENOLATE MOFETIL
     Indication: Prophylaxis against graft versus host disease
     Route: 065
  3. CYCLOSPORINE [Suspect]
     Active Substance: CYCLOSPORINE
     Indication: Prophylaxis against graft versus host disease
     Route: 065
  4. METHYLPREDNISOLONE [Suspect]
     Active Substance: METHYLPREDNISOLONE
     Indication: Acute graft versus host disease
     Route: 065
  5. METHOTREXATE [Suspect]
     Active Substance: METHOTREXATE
     Indication: Acute graft versus host disease
     Route: 065
  6. TACROLIMUS [Suspect]
     Active Substance: TACROLIMUS
     Indication: Chronic graft versus host disease
     Route: 065
     Dates: start: 202008
  7. TACROLIMUS [Suspect]
     Active Substance: TACROLIMUS
     Indication: Chronic graft versus host disease
     Route: 065
     Dates: start: 202102
  8. TACROLIMUS [Suspect]
     Active Substance: TACROLIMUS
     Indication: Chronic graft versus host disease
     Route: 065
     Dates: start: 20230823
  9. MYCOPHENOLATE MOFETIL [Suspect]
     Active Substance: MYCOPHENOLATE MOFETIL
     Indication: Chronic graft versus host disease
     Route: 065
     Dates: start: 20230823
  10. CYCLOSPORINE [Suspect]
     Active Substance: CYCLOSPORINE
     Indication: Chronic graft versus host disease
     Route: 065
     Dates: start: 20230823

REACTIONS (5)
  - Chronic graft versus host disease [Recovering/Resolving]
  - Acute graft versus host disease [Unknown]
  - Drug ineffective for unapproved indication [Unknown]
  - Therapeutic product effect incomplete [Unknown]
  - Product use in unapproved indication [Unknown]

NARRATIVE: CASE EVENT DATE: 20190401
